FAERS Safety Report 19367089 (Version 1)
Quarter: 2021Q2

REPORT INFORMATION
  Report Type: Spontaneous
  Country: US (occurrence: US)
  Receive Date: 20210602
  Receipt Date: 20210602
  Transmission Date: 20210717
  Serious: Yes (Hospitalization)
  Sender: FDA-Public Use
  Company Number: US-CUMBERLAND-2021-US-000017

PATIENT
  Age: 54 Year
  Sex: Male

DRUGS (1)
  1. REDITREX [Suspect]
     Active Substance: METHOTREXATE

REACTIONS (3)
  - Pancytopenia [Recovered/Resolved]
  - Toxicity to various agents [Recovered/Resolved]
  - Accidental overdose [Recovered/Resolved]
